FAERS Safety Report 20887229 (Version 1)
Quarter: 2022Q2

REPORT INFORMATION
  Report Type: Spontaneous
  Country: GB (occurrence: GB)
  Receive Date: 20220528
  Receipt Date: 20220528
  Transmission Date: 20220721
  Serious: Yes (Hospitalization, Other)
  Sender: FDA-Public Use
  Company Number: GB-Crescent Pharma Limited-CRS202205-000146

PATIENT
  Age: 29 Year
  Sex: Male
  Weight: 76.2 kg

DRUGS (3)
  1. HALOPERIDOL [Suspect]
     Active Substance: HALOPERIDOL
     Indication: Agitation
     Dosage: REDUCING IT FOR THE LAST 5 YEARS, UNIT DOSE : 7.5 MG, THERAPY DURATION : 3 MONTHS
     Route: 065
     Dates: start: 202001
  2. HALOPERIDOL [Suspect]
     Active Substance: HALOPERIDOL
     Indication: Autism spectrum disorder
     Dosage: 1 MILLIGRAM DAILY; UNIT DOSE : 1 MG,FREQUENCY TIME : 1 DAYS,  THERAPY DURATION : 3 MONTHS
     Route: 065
  3. HALOPERIDOL [Suspect]
     Active Substance: HALOPERIDOL
     Indication: Psychotic disorder
     Dosage: 500 MICROGRAM DAILY;  AT NIGHT (FOR THE PAST 3 MOTHS-0.5 MG), UNIT DOSE : 500 MICROGRAM, FREQUENCY :
     Route: 065

REACTIONS (7)
  - Speech disorder [Not Recovered/Not Resolved]
  - Thinking abnormal [Not Recovered/Not Resolved]
  - Feeling abnormal [Not Recovered/Not Resolved]
  - Protrusion tongue [Not Recovered/Not Resolved]
  - Grimacing [Not Recovered/Not Resolved]
  - Sedation [Not Recovered/Not Resolved]
  - Drug dependence [Not Recovered/Not Resolved]
